FAERS Safety Report 11051000 (Version 2)
Quarter: 2015Q2

REPORT INFORMATION
  Report Type: Report from Study
  Country: DE (occurrence: DE)
  Receive Date: 20150421
  Receipt Date: 20150603
  Transmission Date: 20150821
  Serious: Yes (Death)
  Sender: FDA-Public Use
  Company Number: DE-BEH-2015050356

PATIENT
  Age: 73 Year
  Sex: Male
  Weight: 82 kg

DRUGS (31)
  1. PRIVIGEN [Suspect]
     Active Substance: HUMAN IMMUNOGLOBULIN G
     Dosage: INFUSION RATE MIN. 0.6 ML/MIN, MAX. 4.8 ML/MIN
     Route: 042
     Dates: start: 20150213, end: 20150213
  2. PARACETAMOL [Concomitant]
     Active Substance: ACETAMINOPHEN
     Route: 048
     Dates: start: 20141205, end: 20141205
  3. PRIVIGEN [Suspect]
     Active Substance: HUMAN IMMUNOGLOBULIN G
     Dosage: 30 G IN TOTAL
     Route: 042
     Dates: start: 20141114, end: 20141114
  4. GLIBENCLAMID [Concomitant]
     Active Substance: GLYBURIDE
     Dosage: 1/2-0-0
  5. LORAZEPAM. [Concomitant]
     Active Substance: LORAZEPAM
     Dosage: 0-0-1/2
  6. LEVETIRACETAM. [Concomitant]
     Active Substance: LEVETIRACETAM
     Dosage: 1-0-1
  7. PARACETAMOL [Concomitant]
     Active Substance: ACETAMINOPHEN
     Route: 048
     Dates: start: 20141114, end: 20141114
  8. NOVALGIN [Concomitant]
     Active Substance: METAMIZOLE SODIUM
     Indication: PREMEDICATION
     Route: 042
     Dates: start: 20150122, end: 20150122
  9. PRIVIGEN [Suspect]
     Active Substance: HUMAN IMMUNOGLOBULIN G
     Dosage: 30 G IN TOTAL
     Route: 042
     Dates: start: 20141205, end: 20141205
  10. PRIVIGEN [Suspect]
     Active Substance: HUMAN IMMUNOGLOBULIN G
     Dosage: INFUSION RATE MIN. 0.6 ML/MIN, MAX. 4.8 ML/MIN
     Route: 042
     Dates: start: 20141229, end: 20141229
  11. PARACETAMOL [Concomitant]
     Active Substance: ACETAMINOPHEN
     Indication: PREMEDICATION
     Route: 048
     Dates: start: 20141024, end: 20141024
  12. PARACETAMOL [Concomitant]
     Active Substance: ACETAMINOPHEN
     Route: 048
     Dates: start: 20150213, end: 20150213
  13. PRIVIGEN [Suspect]
     Active Substance: HUMAN IMMUNOGLOBULIN G
     Dosage: INFUSION RATE MIN. 0.6 ML/MIN, MAX. 4.8 ML/MIN
     Route: 042
     Dates: start: 20141024, end: 20141024
  14. PRIVIGEN [Suspect]
     Active Substance: HUMAN IMMUNOGLOBULIN G
     Dosage: INFUSION RATE MIN. 0.6 ML/MIN, MAX. 4.8 ML/MIN
     Route: 042
     Dates: start: 20141024, end: 20141024
  15. PRIVIGEN [Suspect]
     Active Substance: HUMAN IMMUNOGLOBULIN G
     Dosage: 30 G IN TOTAL
     Route: 042
     Dates: start: 20150122, end: 20150122
  16. PRIVIGEN [Suspect]
     Active Substance: HUMAN IMMUNOGLOBULIN G
     Indication: B-CELL SMALL LYMPHOCYTIC LYMPHOMA
     Dosage: INFUSION RATE MIN. 0.6 ML/MIN, MAX. 4.8 ML/MIN
     Route: 042
     Dates: start: 20150122, end: 20150122
  17. CANDESARTAN [Concomitant]
     Active Substance: CANDESARTAN
     Dosage: 1-0-0
  18. SPIRIVA [Concomitant]
     Active Substance: TIOTROPIUM BROMIDE MONOHYDRATE
     Dosage: 1-0-0
     Route: 055
  19. PRIVIGEN [Suspect]
     Active Substance: HUMAN IMMUNOGLOBULIN G
     Dosage: INFUSION RATE MIN. 0.6 ML/MIN, MAX. 4.8 ML/MIN
     Route: 042
     Dates: start: 20141205, end: 20141205
  20. VIANI [Concomitant]
     Active Substance: FLUTICASONE PROPIONATE\SALMETEROL XINAFOATE
     Dosage: 50/250 1-0-1
     Route: 055
  21. PRIVIGEN [Suspect]
     Active Substance: HUMAN IMMUNOGLOBULIN G
     Dosage: 30 G IN TOTAL
     Route: 042
     Dates: start: 20141024, end: 20141024
  22. PRIVIGEN [Suspect]
     Active Substance: HUMAN IMMUNOGLOBULIN G
     Dosage: 30 G IN TOTAL
     Route: 042
     Dates: start: 20141229, end: 20141229
  23. PRIVIGEN [Suspect]
     Active Substance: HUMAN IMMUNOGLOBULIN G
     Dosage: 30 G IN TOTAL
     Route: 042
     Dates: start: 20150213, end: 20150213
  24. PRIVIGEN [Suspect]
     Active Substance: HUMAN IMMUNOGLOBULIN G
     Indication: THROMBOCYTOPENIA
     Dosage: INFUSION RATE MIN. 0.6 ML/MIN, MAX. 4.8 ML/MIN
     Route: 042
     Dates: start: 20141114, end: 20141114
  25. PRIVIGEN [Suspect]
     Active Substance: HUMAN IMMUNOGLOBULIN G
     Dosage: INFUSION RATE MIN. 0.6 ML/MIN, MAX. 4.8 ML/MIN
     Route: 042
     Dates: start: 20141114, end: 20141114
  26. PARACETAMOL [Concomitant]
     Active Substance: ACETAMINOPHEN
     Route: 048
     Dates: start: 20141229, end: 20141229
  27. PRIVIGEN [Suspect]
     Active Substance: HUMAN IMMUNOGLOBULIN G
     Indication: SECONDARY IMMUNODEFICIENCY
     Dosage: INFUSION RATE MIN. 0.6 ML/MIN, MAX. 4.8 ML/MIN
     Route: 042
     Dates: start: 20141205, end: 20141205
  28. PRIVIGEN [Suspect]
     Active Substance: HUMAN IMMUNOGLOBULIN G
     Dosage: INFUSION RATE MIN. 0.6 ML/MIN, MAX. 4.8 ML/MIN
     Route: 042
     Dates: start: 20141229, end: 20141229
  29. PRIVIGEN [Suspect]
     Active Substance: HUMAN IMMUNOGLOBULIN G
     Dosage: INFUSION RATE MIN. 0.6 ML/MIN, MAX. 4.8 ML/MIN
     Route: 042
     Dates: start: 20150122, end: 20150122
  30. PRIVIGEN [Suspect]
     Active Substance: HUMAN IMMUNOGLOBULIN G
     Dosage: INFUSION RATE MIN. 0.6 ML/MIN, MAX. 4.8 ML/MIN
     Route: 042
     Dates: start: 20150213, end: 20150213
  31. METFORMIN [Concomitant]
     Active Substance: METFORMIN HYDROCHLORIDE
     Dosage: 1-0-1

REACTIONS (4)
  - Respiratory failure [Fatal]
  - Peritonitis [Recovered/Resolved]
  - Cholecystitis infective [Recovered/Resolved]
  - Bronchitis bacterial [Fatal]

NARRATIVE: CASE EVENT DATE: 20150121
